FAERS Safety Report 9286467 (Version 2)
Quarter: 2014Q3

REPORT INFORMATION
  Report Type: Spontaneous
  Country: US (occurrence: US)
  Receive Date: 20130513
  Receipt Date: 20140804
  Transmission Date: 20150326
  Serious: Yes (Other)
  Sender: FDA-Public Use
  Company Number: US-BAYER-2013-058698

PATIENT
  Age: 40 Year
  Sex: Female
  Weight: 62.59 kg

DRUGS (2)
  1. OCELLA [Suspect]
     Active Substance: DROSPIRENONE\ETHINYL ESTRADIOL
     Indication: PREMENSTRUAL SYNDROME
  2. OCELLA [Suspect]
     Active Substance: DROSPIRENONE\ETHINYL ESTRADIOL
     Indication: PREMENSTRUAL DYSPHORIC DISORDER
     Dosage: UNK
     Dates: start: 2009, end: 2010

REACTIONS (12)
  - Emotional distress [None]
  - Deep vein thrombosis [None]
  - Thrombosis [None]
  - Migraine [None]
  - General physical health deterioration [None]
  - Peripheral swelling [None]
  - Anxiety [None]
  - Pain [None]
  - Joint swelling [None]
  - Abdominal pain [None]
  - Injury [None]
  - Muscle swelling [None]

NARRATIVE: CASE EVENT DATE: 2009
